FAERS Safety Report 7950302-7 (Version None)
Quarter: 2011Q4

REPORT INFORMATION
  Report Type: 
  Country: None (occurrence: None)
  Receive Date: 20111130
  Receipt Date: 20111116
  Transmission Date: 20120403
  Serious: Yes (Hospitalization)
  Sender: FDA-Public Use
  Company Number: US-BAYER-2011-049582

PATIENT
  Age: 21 Year
  Sex: Female

DRUGS (2)
  1. YASMIN [Suspect]
     Indication: ORAL CONTRACEPTION
     Dosage: UNK
     Dates: start: 20040501, end: 20040601
  2. YASMIN [Suspect]
     Indication: DYSMENORRHOEA

REACTIONS (5)
  - GENERAL PHYSICAL HEALTH DETERIORATION [None]
  - EMOTIONAL DISTRESS [None]
  - ANXIETY [None]
  - PULMONARY EMBOLISM [None]
  - PAIN [None]
